FAERS Safety Report 12755880 (Version 1)
Quarter: 2016Q3

REPORT INFORMATION
  Report Type: Spontaneous
  Country: US (occurrence: US)
  Receive Date: 20160916
  Receipt Date: 20160916
  Transmission Date: 20161109
  Serious: No
  Sender: FDA-Public Use
  Company Number: US-009507513-1609USA003388

PATIENT
  Age: 75 Year
  Sex: Female

DRUGS (2)
  1. NASONEX [Suspect]
     Active Substance: MOMETASONE FUROATE
     Indication: RHINITIS ALLERGIC
     Dosage: 2 SPRAYS IN EACH NOSTRIL DAILY
     Route: 045
  2. XYLITOL [Concomitant]
     Active Substance: XYLITOL

REACTIONS (1)
  - Drug ineffective [Recovering/Resolving]
